FAERS Safety Report 15657651 (Version 1)
Quarter: 2018Q4

REPORT INFORMATION
  Report Type: Spontaneous
  Country: US (occurrence: US)
  Receive Date: 20181126
  Receipt Date: 20181126
  Transmission Date: 20190205
  Serious: No
  Sender: FDA-Public Use
  Company Number: US-NOVOPROD-606504

PATIENT
  Age: 47 Year
  Sex: Female
  Weight: 81.63 kg

DRUGS (2)
  1. NOVOLOG MIX 70/30 [Suspect]
     Active Substance: INSULIN ASPART
     Indication: TYPE 2 DIABETES MELLITUS
     Dosage: 10 U, BID
     Route: 058
     Dates: start: 20180606, end: 201806
  2. NOVOLOG MIX 70/30 [Suspect]
     Active Substance: INSULIN ASPART
     Dosage: 5 U, BID
     Route: 058
     Dates: start: 201806, end: 20180610

REACTIONS (8)
  - Vomiting [Recovering/Resolving]
  - Blood glucose increased [Recovered/Resolved]
  - Memory impairment [Recovering/Resolving]
  - Scab [Recovering/Resolving]
  - Headache [Recovering/Resolving]
  - Poor peripheral circulation [Recovered/Resolved]
  - Nausea [Recovering/Resolving]
  - Blood pressure increased [Recovered/Resolved]

NARRATIVE: CASE EVENT DATE: 20180606
